FAERS Safety Report 6494114-2 (Version None)
Quarter: 2009Q4

REPORT INFORMATION
  Report Type: 
  Country: None (occurrence: None)
  Receive Date: 20091214
  Receipt Date: 20090105
  Transmission Date: 20100525
  Serious: No
  Sender: FDA-Public Use
  Company Number: US-BRISTOL-MYERS SQUIBB COMPANY-14460703

PATIENT
  Age: 13 Year
  Sex: Male
  Weight: 98 kg

DRUGS (11)
  1. ABILIFY [Suspect]
     Dosage: 5MGTAB BID 3MON AGO,10MGTAB BID 1MON LATER,20MG/D 1MON AGO,20MGTAB NDC#591-48-0110-13,LOT#8E39904A
     Dates: start: 20080101
  2. FLUOXETINE [Concomitant]
  3. GUANFACINE HYDROCHLORIDE [Concomitant]
  4. HYDROCORTISONE [Concomitant]
  5. LEVOTHYROXINE SODIUM [Concomitant]
  6. FLOVENT [Concomitant]
     Route: 055
  7. ALBUTEROL SULATE [Concomitant]
     Route: 055
  8. VITAMIN D [Concomitant]
  9. MULTI-VITAMIN [Concomitant]
  10. MIRALAX [Concomitant]
  11. NORDITROPIN [Concomitant]

REACTIONS (2)
  - FATIGUE [None]
  - SOMNOLENCE [None]
